FAERS Safety Report 7305069-2 (Version None)
Quarter: 2011Q1

REPORT INFORMATION
  Report Type: 
  Country: None (occurrence: None)
  Receive Date: 20110222
  Receipt Date: 20110126
  Transmission Date: 20110831
  Serious: No
  Sender: FDA-Public Use
  Company Number: US-B.I. PHARMACEUTICALS,INC./RIDGEFIELD-2011-BP-02542BP

PATIENT
  Age: 93 Year
  Sex: Male

DRUGS (15)
  1. DETROL LA [Concomitant]
  2. PRADAXA [Suspect]
     Indication: CEREBROVASCULAR ACCIDENT PROPHYLAXIS
  3. LASIX [Concomitant]
  4. POTASSIUM CHLORIDE [Concomitant]
  5. DIOVAN HCT [Concomitant]
  6. ALLOPURINOL [Concomitant]
  7. DEMADEX [Concomitant]
  8. NORVASC [Concomitant]
  9. LEVOTHYROXINE [Concomitant]
  10. PRADAXA [Suspect]
     Indication: ATRIAL FIBRILLATION
     Dosage: 300 MG
     Route: 048
     Dates: start: 20101201
  11. DIGOXIN [Concomitant]
  12. CATAPRES-TTS-3 [Concomitant]
     Dosage: 0.3 MG
     Route: 061
  13. COREG [Concomitant]
  14. CARDURA [Concomitant]
  15. MULTAQ [Concomitant]

REACTIONS (5)
  - NAUSEA [None]
  - FLUID RETENTION [None]
  - JOINT SWELLING [None]
  - SKIN LESION [None]
  - EXCORIATION [None]
